FAERS Safety Report 12799367 (Version 1)
Quarter: 2016Q3

REPORT INFORMATION
  Report Type: Spontaneous
  Country: JP (occurrence: JP)
  Receive Date: 20160930
  Receipt Date: 20160930
  Transmission Date: 20161109
  Serious: Yes (Hospitalization)
  Sender: FDA-Public Use
  Company Number: JP-JNJFOC-20160930513

PATIENT
  Age: 75 Year
  Sex: Female
  Weight: 60 kg

DRUGS (11)
  1. PURSENNID [Concomitant]
     Active Substance: SENNOSIDES A AND B
     Dosage: STARTED BEFORE CANAGLIFLOZIN
     Route: 048
     Dates: end: 20160406
  2. CANAGLU [Suspect]
     Active Substance: CANAGLIFLOZIN
     Indication: TYPE 2 DIABETES MELLITUS
     Route: 048
     Dates: start: 20160121, end: 20160406
  3. NESINA [Concomitant]
     Active Substance: ALOGLIPTIN BENZOATE
     Indication: TYPE 2 DIABETES MELLITUS
     Dosage: STARTED BEFORE 2009
     Route: 048
     Dates: end: 20160406
  4. TRESIBA [Concomitant]
     Active Substance: INSULIN DEGLUDEC
     Indication: TYPE 2 DIABETES MELLITUS
     Dosage: STARTED BEFORE 2009
     Route: 051
     Dates: end: 20160406
  5. SEIBULE [Concomitant]
     Active Substance: MIGLITOL
     Indication: TYPE 2 DIABETES MELLITUS
     Dosage: STARTED BEFORE CANAGLIFLOZIN
     Route: 048
     Dates: end: 20160406
  6. BAYASPIRIN [Concomitant]
     Active Substance: ASPIRIN
     Indication: PROPHYLAXIS
     Dosage: STARTED BEFORE CANAGLIFLOZIN
     Route: 048
     Dates: end: 20160406
  7. KINEDAK [Concomitant]
     Active Substance: EPALRESTAT
     Dosage: STARTED BEFORE CANAGLIFLOZIN
     Route: 048
     Dates: end: 20160406
  8. METGLUCO [Concomitant]
     Active Substance: METFORMIN HYDROCHLORIDE
     Indication: TYPE 2 DIABETES MELLITUS
     Dosage: STARTED BEFORE CANAGLIFLOZIN
     Route: 048
     Dates: end: 20160406
  9. SUREPOST [Concomitant]
     Active Substance: REPAGLINIDE
     Indication: TYPE 2 DIABETES MELLITUS
     Dosage: DOSE DIVIDED INTO 3 TIMES; STARTED BEFORE CANAGLIFLOZIN
     Route: 048
     Dates: end: 20160406
  10. MICARDIS [Concomitant]
     Active Substance: TELMISARTAN
     Dosage: STARTED BEFORE CANAGLIFLOZIN
     Route: 048
     Dates: end: 20160406
  11. FAMOTIDINE. [Concomitant]
     Active Substance: FAMOTIDINE
     Dosage: STARTED BEFORE CANAGLIFLOZIN
     Route: 048
     Dates: end: 20160406

REACTIONS (1)
  - Thalamus haemorrhage [Recovered/Resolved with Sequelae]

NARRATIVE: CASE EVENT DATE: 20160406
